FAERS Safety Report 23504580 (Version 1)
Quarter: 2024Q1

REPORT INFORMATION
  Report Type: Spontaneous
  Country: US (occurrence: None)
  Receive Date: 20240208
  Receipt Date: 20240208
  Transmission Date: 20240409
  Serious: Yes (Hospitalization)
  Sender: FDA-Public Use
  Company Number: None

PATIENT
  Age: 50 Year
  Sex: Female

DRUGS (1)
  1. KESIMPTA [Suspect]
     Active Substance: OFATUMUMAB
     Indication: Multiple sclerosis
     Dosage: FREQUENCY : MONTHLY;?

REACTIONS (7)
  - Dyspnoea [None]
  - Thrombosis [None]
  - COVID-19 [None]
  - Neuropathy peripheral [None]
  - Fatigue [None]
  - Decreased interest [None]
  - Loss of personal independence in daily activities [None]
